FAERS Safety Report 24372399 (Version 1)
Quarter: 2024Q3

REPORT INFORMATION
  Report Type: Spontaneous
  Country: FR (occurrence: FR)
  Receive Date: 20240927
  Receipt Date: 20240927
  Transmission Date: 20241017
  Serious: Yes (Hospitalization)
  Sender: RANBAXY
  Company Number: FR-AFSSAPS-MP2024001187

PATIENT
  Age: 1 Month
  Sex: Male
  Weight: 2.87 kg

DRUGS (1)
  1. SERTRALINE [Suspect]
     Active Substance: SERTRALINE HYDROCHLORIDE
     Indication: Depression
     Dosage: 75 MG/DAY AT THE START OF PREGNANCY, INCREASE TO 100 AND 150 MG/DAY FROM 05/27 (35 WEEKS)
     Route: 064

REACTIONS (1)
  - Newborn persistent pulmonary hypertension [Recovered/Resolved]

NARRATIVE: CASE EVENT DATE: 20240614
